FAERS Safety Report 21816976 (Version 3)
Quarter: 2023Q1

REPORT INFORMATION
  Report Type: Report from Study
  Country: US (occurrence: US)
  Receive Date: 20230104
  Receipt Date: 20230220
  Transmission Date: 20230417
  Serious: Yes (Death, Other)
  Sender: FDA-Public Use
  Company Number: US-002147023-NVSC2023US001370

PATIENT
  Age: 83 Year
  Sex: Female

DRUGS (14)
  1. PROMACTA [Suspect]
     Active Substance: ELTROMBOPAG OLAMINE
     Indication: Thrombocytopenia
     Dosage: 25 MG, QD
     Route: 048
     Dates: start: 201807
  2. PROMACTA [Suspect]
     Active Substance: ELTROMBOPAG OLAMINE
     Indication: Immune thrombocytopenia
  3. WARFARIN [Suspect]
     Active Substance: WARFARIN
     Indication: Product used for unknown indication
     Dosage: 2 MG, QD (1.0 1)
     Route: 048
  4. ASPIRIN [Concomitant]
     Active Substance: ASPIRIN
     Indication: Product used for unknown indication
     Dosage: UNK (81.0 1)
     Route: 048
  5. BUDESONIDE [Concomitant]
     Active Substance: BUDESONIDE
     Indication: Product used for unknown indication
     Dosage: UNK (NEBULIZED) (1.0 1)
     Route: 065
  6. ESTER-C [Concomitant]
     Indication: Product used for unknown indication
     Dosage: UNK
     Route: 048
  7. FORMOTEROL [Concomitant]
     Active Substance: FORMOTEROL
     Indication: Product used for unknown indication
     Dosage: UNK (NEBULIZED, 20.0 1)
     Route: 065
  8. FUROSEMIDE [Concomitant]
     Active Substance: FUROSEMIDE
     Indication: Product used for unknown indication
     Dosage: UNK (40.0 1)
     Route: 048
  9. GABAPENTIN [Concomitant]
     Active Substance: GABAPENTIN
     Indication: Product used for unknown indication
     Dosage: UNK (600.0 1)
     Route: 048
  10. GLUCOSAMINE/CHONDROITIN [Concomitant]
     Indication: Product used for unknown indication
     Dosage: 2 DOSAGE FORM, QD
     Route: 048
  11. LISINOPRIL [Concomitant]
     Active Substance: LISINOPRIL
     Indication: Product used for unknown indication
     Dosage: UNK
     Route: 048
  12. VITAMINS [Concomitant]
     Active Substance: VITAMINS
     Indication: Product used for unknown indication
     Dosage: 1 DOSAGE FORM, QD
     Route: 048
  13. POTASSIUM CHLORIDE [Concomitant]
     Active Substance: POTASSIUM CHLORIDE
     Indication: Product used for unknown indication
     Dosage: UNK (ER TAB, 40.0 1)
     Route: 048
  14. SACCHAROMYCES CEREVISIAE [Concomitant]
     Active Substance: SACCHAROMYCES CEREVISIAE
     Indication: Product used for unknown indication
     Dosage: UNK
     Route: 048

REACTIONS (27)
  - Death [Fatal]
  - Aortic stenosis [Not Recovered/Not Resolved]
  - Atrial fibrillation [Recovered/Resolved]
  - Syncope [Recovered/Resolved]
  - Pneumonia aspiration [Not Recovered/Not Resolved]
  - Chronic respiratory failure [Not Recovered/Not Resolved]
  - Clostridium difficile colitis [Recovered/Resolved]
  - Deafness [Not Recovered/Not Resolved]
  - Pulmonary hypertension [Not Recovered/Not Resolved]
  - Haematemesis [Not Recovered/Not Resolved]
  - Pneumonia [Not Recovered/Not Resolved]
  - Atrial fibrillation [Not Recovered/Not Resolved]
  - Aortic valve stenosis [Recovered/Resolved]
  - Aortic valve stenosis [Not Recovered/Not Resolved]
  - Chronic left ventricular failure [Not Recovered/Not Resolved]
  - Chronic obstructive pulmonary disease [Not Recovered/Not Resolved]
  - Chronic obstructive pulmonary disease [Recovered/Resolved]
  - Conduction disorder [Recovered/Resolved]
  - Pharyngeal disorder [Not Recovered/Not Resolved]
  - Essential hypertension [Recovered/Resolved]
  - Lymphadenopathy mediastinal [Not Recovered/Not Resolved]
  - Presyncope [Not Recovered/Not Resolved]
  - Obstructive sleep apnoea syndrome [Not Recovered/Not Resolved]
  - Pleural effusion [Recovered/Resolved]
  - Chronic obstructive pulmonary disease [Not Recovered/Not Resolved]
  - Sleep apnoea syndrome [Not Recovered/Not Resolved]
  - Urinary tract infection [Recovered/Resolved]

NARRATIVE: CASE EVENT DATE: 20221217
